FAERS Safety Report 24695027 (Version 1)
Quarter: 2024Q4

REPORT INFORMATION
  Report Type: Spontaneous
  Country: US (occurrence: None)
  Receive Date: 20241203
  Receipt Date: 20241203
  Transmission Date: 20250114
  Serious: Yes (Hospitalization)
  Sender: Public
  Company Number: None

PATIENT
  Age: 66 Year
  Sex: Male

DRUGS (1)
  1. IMATINIB MESYLATE [Suspect]
     Active Substance: IMATINIB MESYLATE
     Indication: Chronic myeloid leukaemia
     Dosage: FREQUENCY : DAILY;?
     Dates: start: 20231101

REACTIONS (9)
  - Cystitis [None]
  - Urinary tract infection [None]
  - Pharyngitis streptococcal [None]
  - Fall [None]
  - Osteopenia [None]
  - Lumbar vertebral fracture [None]
  - Bone pain [None]
  - Flatulence [None]
  - Diarrhoea [None]
